FAERS Safety Report 4438841-7 (Version None)
Quarter: 2004Q3

REPORT INFORMATION
  Report Type: 
  Country: None (occurrence: None)
  Receive Date: 20040830
  Receipt Date: 20040820
  Transmission Date: 20050211
  Serious: Yes (Death)
  Sender: FDA-Public Use
  Company Number: 2004-08-1433

PATIENT
  Age: 49 Year
  Sex: Male
  Weight: 83.4619 kg

DRUGS (10)
  1. PEG-INTRON [Suspect]
     Indication: HEPATITIS C
     Dosage: 120 MCG QW SUBCUTANEOUS
     Route: 058
     Dates: start: 20040414
  2. RIBAVIRIN [Suspect]
     Indication: HEPATITIS C
     Dosage: 1000 MG QD ORAL
     Route: 048
     Dates: start: 20040414
  3. LANTUS [Concomitant]
  4. NOVOLIN [Concomitant]
  5. ACTOS [Concomitant]
  6. DIOVAN [Concomitant]
  7. ATENOLOL [Concomitant]
  8. LOTREL [Concomitant]
  9. LORTAB [Concomitant]
  10. SEDATIVE/HYPNOTIC (NOS) [Concomitant]

REACTIONS (1)
  - HAEMOGLOBIN DECREASED [None]
